FAERS Safety Report 11679798 (Version 2)
Quarter: 2015Q4

REPORT INFORMATION
  Report Type: Spontaneous
  Country: US (occurrence: US)
  Receive Date: 20151027
  Receipt Date: 20151104
  Transmission Date: 20160304
  Serious: No
  Sender: FDA-Public Use
  Company Number: US-ELI_LILLY_AND_COMPANY-US201010007241

PATIENT
  Age: 76 Year
  Sex: Female

DRUGS (5)
  1. FORTEO [Suspect]
     Active Substance: TERIPARATIDE
     Dosage: 20 UG, DAILY (1/D)
  2. FORTEO [Suspect]
     Active Substance: TERIPARATIDE
     Dosage: 20 UG, QD
  3. FORTEO [Suspect]
     Active Substance: TERIPARATIDE
     Dosage: 20 UG, QD
  4. FORTEO [Suspect]
     Active Substance: TERIPARATIDE
     Dosage: 20 UG, QD
  5. FORTEO [Suspect]
     Active Substance: TERIPARATIDE
     Indication: OSTEOPOROSIS
     Dosage: 20 UG, QD

REACTIONS (28)
  - Abdominal discomfort [Unknown]
  - Restlessness [Unknown]
  - Nasopharyngitis [Unknown]
  - Limb discomfort [Unknown]
  - Visual impairment [Unknown]
  - Nasopharyngitis [Recovering/Resolving]
  - Macular degeneration [Unknown]
  - Pain [Unknown]
  - Scar [Unknown]
  - Eyeglasses therapy [Unknown]
  - Arthralgia [Not Recovered/Not Resolved]
  - Injection site bruising [Unknown]
  - Pain in extremity [Not Recovered/Not Resolved]
  - Dysstasia [Unknown]
  - Cough [Unknown]
  - Rhinorrhoea [Recovering/Resolving]
  - Chills [Recovering/Resolving]
  - Fall [Recovered/Resolved]
  - Upper limb fracture [Unknown]
  - Somnolence [Unknown]
  - Dizziness [Recovering/Resolving]
  - Back pain [Unknown]
  - Myalgia [Unknown]
  - Hyperhidrosis [Recovering/Resolving]
  - Injection site pain [Unknown]
  - Diplopia [Unknown]
  - Fatigue [Not Recovered/Not Resolved]
  - Fatigue [Unknown]

NARRATIVE: CASE EVENT DATE: 20110501
